FAERS Safety Report 17144032 (Version 2)
Quarter: 2020Q1

REPORT INFORMATION
  Report Type: Report from Study
  Country: US (occurrence: US)
  Receive Date: 20191211
  Receipt Date: 20200127
  Transmission Date: 20200409
  Serious: Yes (Hospitalization, Other)
  Sender: FDA-Public Use
  Company Number: NVSC2019US008293

PATIENT
  Age: 18 Year
  Sex: Male
  Weight: 48 kg

DRUGS (3)
  1. LAMPRENE [Suspect]
     Active Substance: CLOFAZIMINE
     Dosage: 100 MG
     Route: 048
     Dates: start: 20190912
  2. LAMPRENE [Suspect]
     Active Substance: CLOFAZIMINE
     Indication: MYCOBACTERIUM ABSCESSUS INFECTION
     Dosage: 100 MG
     Route: 048
     Dates: start: 20170106
  3. LAMPRENE [Suspect]
     Active Substance: CLOFAZIMINE
     Dosage: 100 MG
     Route: 048
     Dates: start: 20190219

REACTIONS (7)
  - Infective pulmonary exacerbation of cystic fibrosis [Recovered/Resolved]
  - Post-tussive vomiting [Unknown]
  - Cough [Unknown]
  - Infective pulmonary exacerbation of cystic fibrosis [Recovered/Resolved]
  - Pulmonary hypertension [Not Recovered/Not Resolved]
  - Hypoxia [Not Recovered/Not Resolved]
  - Weight decreased [Not Recovered/Not Resolved]

NARRATIVE: CASE EVENT DATE: 20190220
